FAERS Safety Report 9379786 (Version 1)
Quarter: 2013Q3

REPORT INFORMATION
  Report Type: Spontaneous
  Country: US (occurrence: None)
  Receive Date: 20130701
  Receipt Date: 20130701
  Transmission Date: 20140515
  Serious: Yes (Other)
  Sender: FDA-Public Use
  Company Number: None

PATIENT
  Age: 15 Year
  Sex: Female
  Weight: 50.4 kg

DRUGS (7)
  1. ATGAM [Suspect]
     Route: 042
     Dates: start: 20121110, end: 20121110
  2. FEXOFENADINE [Concomitant]
  3. METHIMAZOLE [Concomitant]
  4. MYCOPHENOLATE MOFETIL [Concomitant]
  5. SODIUM BICARBONATE [Concomitant]
  6. TACROLIMUS [Concomitant]
  7. TOPIRAMATE [Concomitant]

REACTIONS (5)
  - Infusion related reaction [None]
  - Flushing [None]
  - Pruritus [None]
  - Lip swelling [None]
  - Paraesthesia oral [None]
